FAERS Safety Report 8303692-X (Version None)
Quarter: 2012Q2

REPORT INFORMATION
  Report Type: 
  Country: None (occurrence: None)
  Receive Date: 20120418
  Receipt Date: 20120403
  Transmission Date: 20120825
  Serious: Yes (Hospitalization)
  Sender: FDA-Public Use
  Company Number: TCI2012A01754

PATIENT
  Age: 62 Year
  Sex: Female

DRUGS (3)
  1. ROSUVASTATIN CALCIUM [Concomitant]
  2. LANSOPRAZOLE [Suspect]
     Indication: GASTROOESOPHAGEAL REFLUX DISEASE
     Dosage: PER ORAL
     Route: 048
     Dates: start: 20100101, end: 20100101
  3. LANSOPRAZOLE [Suspect]
     Indication: GASTROOESOPHAGEAL REFLUX DISEASE
     Dosage: PER ORAL
     Route: 048
     Dates: start: 20091001, end: 20100101

REACTIONS (4)
  - COLITIS MICROSCOPIC [None]
  - LARGE INTESTINAL ULCER [None]
  - ACUTE ABDOMEN [None]
  - HAEMATOCHEZIA [None]
